FAERS Safety Report 24441277 (Version 2)
Quarter: 2024Q4

REPORT INFORMATION
  Report Type: Report from Study
  Country: EG (occurrence: EG)
  Receive Date: 20241016
  Receipt Date: 20241017
  Transmission Date: 20250115
  Serious: No
  Sender: ROCHE
  Company Number: EG-ROCHE-3475696

PATIENT
  Age: 6 Year
  Sex: Male
  Weight: 25.0 kg

DRUGS (6)
  1. EMICIZUMAB [Suspect]
     Active Substance: EMICIZUMAB
     Indication: Factor VIII deficiency
     Route: 058
     Dates: start: 20220101
  2. EMICIZUMAB [Suspect]
     Active Substance: EMICIZUMAB
     Dosage: SUBSEQUENT DOSES RECEIVED ON 02-FEB-2023; 17-FEB-2023; 02-MAR-2023; 16-MAR-2023; 30-MAR-2023; 28-APR
     Route: 058
     Dates: start: 20230101
  3. EMICIZUMAB [Suspect]
     Active Substance: EMICIZUMAB
     Route: 058
     Dates: start: 20230119
  4. EMICIZUMAB [Suspect]
     Active Substance: EMICIZUMAB
     Route: 058
     Dates: start: 20231005
  5. EMICIZUMAB [Suspect]
     Active Substance: EMICIZUMAB
     Route: 058
  6. AZITHROMYCIN [Concomitant]
     Active Substance: AZITHROMYCIN
     Indication: Antibiotic therapy
     Route: 048
     Dates: start: 20231009, end: 20231013

REACTIONS (1)
  - Tonsillitis bacterial [Recovered/Resolved]

NARRATIVE: CASE EVENT DATE: 20231009
